FAERS Safety Report 16841681 (Version 1)
Quarter: 2019Q3

REPORT INFORMATION
  Report Type: Spontaneous
  Country: AT (occurrence: AT)
  Receive Date: 20190923
  Receipt Date: 20190923
  Transmission Date: 20191005
  Serious: Yes (Hospitalization)
  Sender: FDA-Public Use
  Company Number: AT-BAUSCH-BL-2019-054632

PATIENT
  Age: 5 Year
  Sex: Male

DRUGS (2)
  1. CYCLOPENTOLATE. [Suspect]
     Active Substance: CYCLOPENTOLATE
     Indication: DACRYOSTENOSIS ACQUIRED
     Dosage: INSTILLED INTO BOTH EYES
     Route: 047
  2. GENTAMYCIN [Concomitant]
     Active Substance: GENTAMICIN
     Indication: CONJUNCTIVITIS

REACTIONS (1)
  - Hypersensitivity [Recovered/Resolved]
